FAERS Safety Report 16262163 (Version 2)
Quarter: 2019Q2

REPORT INFORMATION
  Report Type: Spontaneous
  Country: US (occurrence: US)
  Receive Date: 20190501
  Receipt Date: 20190618
  Transmission Date: 20190711
  Serious: Yes (Other)
  Sender: FDA-Public Use
  Company Number: US-VIFOR (INTERNATIONAL) INC.-VIT-2019-03976

PATIENT
  Age: 63 Year
  Sex: Male

DRUGS (1)
  1. VELTASSA [Suspect]
     Active Substance: PATIROMER
     Indication: HYPERKALAEMIA
     Dates: end: 2019

REACTIONS (6)
  - Hypersensitivity vasculitis [Recovered/Resolved]
  - Cellulitis [Unknown]
  - Pain in extremity [Unknown]
  - Petechiae [Unknown]
  - Peripheral swelling [Unknown]
  - Cutaneous vasculitis [Recovered/Resolved]
